FAERS Safety Report 24300138 (Version 2)
Quarter: 2024Q3

REPORT INFORMATION
  Report Type: Spontaneous
  Country: US (occurrence: US)
  Receive Date: 20240909
  Receipt Date: 20240913
  Transmission Date: 20241017
  Serious: Yes (Other)
  Sender: PFIZER
  Company Number: US-PFIZER INC-PV202400116927

PATIENT
  Age: 49 Year
  Sex: Male

DRUGS (4)
  1. LIDOCAINE HYDROCHLORIDE [Suspect]
     Active Substance: LIDOCAINE HYDROCHLORIDE
     Indication: Local anaesthesia
     Dosage: 10 MG (C6-C7 INTERLAMINAR ESI)
     Route: 008
  2. DEXAMETHASONE [Suspect]
     Active Substance: DEXAMETHASONE
     Dosage: 10 MG (C6-C7 INTERLAMINAR ESI)
     Route: 008
  3. SODIUM CHLORIDE [Concomitant]
     Active Substance: SODIUM CHLORIDE
     Dosage: 3 ML
  4. IOHEXOL [Concomitant]
     Active Substance: IOHEXOL
     Dosage: 300

REACTIONS (1)
  - Hiccups [Recovered/Resolved]
